FAERS Safety Report 8322168-7 (Version None)
Quarter: 2012Q2

REPORT INFORMATION
  Report Type: 
  Country: None (occurrence: None)
  Receive Date: 20120430
  Receipt Date: 20120424
  Transmission Date: 20120825
  Serious: Yes (Hospitalization)
  Sender: FDA-Public Use
  Company Number: US-AMGEN-USACT2012026069

PATIENT
  Age: 65 Year
  Sex: Female
  Weight: 107.3 kg

DRUGS (3)
  1. OXALIPLATIN [Concomitant]
     Indication: BILE DUCT CANCER
     Dosage: 85 MG/M2, Q2WK
     Route: 041
     Dates: start: 20120222
  2. PANITUMUMAB [Suspect]
  3. GEMCITABINE [Concomitant]
     Indication: BILE DUCT CANCER
     Dosage: 1000 MG/M2, Q2WK
     Route: 041
     Dates: start: 20120222

REACTIONS (2)
  - GALLBLADDER PERFORATION [None]
  - CHOLECYSTITIS [None]
